FAERS Safety Report 8080623-1 (Version None)
Quarter: 2012Q1

REPORT INFORMATION
  Report Type: 
  Country: None (occurrence: None)
  Receive Date: 20120130
  Receipt Date: 20120123
  Transmission Date: 20120608
  Serious: Yes (Hospitalization, Other)
  Sender: FDA-Public Use
  Company Number: US-ABBOTT-11P-163-0875583-00

PATIENT
  Sex: Male
  Weight: 76.272 kg

DRUGS (2)
  1. HUMIRA [Suspect]
     Indication: CROHN'S DISEASE
     Route: 058
     Dates: start: 20101101, end: 20110510
  2. HUMIRA [Suspect]
     Indication: RHEUMATOID ARTHRITIS
     Route: 058
     Dates: start: 20110601, end: 20111101

REACTIONS (14)
  - INFLUENZA LIKE ILLNESS [None]
  - GASTROINTESTINAL STOMA COMPLICATION [None]
  - MEDIAL TIBIAL STRESS SYNDROME [None]
  - POST PROCEDURAL COMPLICATION [None]
  - WOUND SECRETION [None]
  - MUSCLE SPASMS [None]
  - UPPER RESPIRATORY TRACT INFECTION [None]
  - ILEOSTOMY [None]
  - NAUSEA [None]
  - PYREXIA [None]
  - ABDOMINAL ADHESIONS [None]
  - INTESTINAL PERFORATION [None]
  - WHITE BLOOD CELL COUNT INCREASED [None]
  - SEPSIS [None]
